FAERS Safety Report 18014056 (Version 3)
Quarter: 2021Q2

REPORT INFORMATION
  Report Type: Spontaneous
  Country: US (occurrence: US)
  Receive Date: 20200713
  Receipt Date: 20210629
  Transmission Date: 20210717
  Serious: No
  Sender: FDA-Public Use
  Company Number: US-TEVA-2020-US-1792589

PATIENT
  Sex: Male

DRUGS (4)
  1. AJOVY [Suspect]
     Active Substance: FREMANEZUMAB-VFRM
  2. LOMOTIL [Concomitant]
     Active Substance: ATROPINE SULFATE\DIPHENOXYLATE HYDROCHLORIDE
  3. AJOVY [Suspect]
     Active Substance: FREMANEZUMAB-VFRM
     Dosage: MONTHLY DOSE
     Route: 065
  4. DILTIAZEM HCL [Concomitant]
     Active Substance: DILTIAZEM HYDROCHLORIDE

REACTIONS (4)
  - Chest pain [Recovered/Resolved]
  - Oxygen saturation decreased [Unknown]
  - Dysphemia [Not Recovered/Not Resolved]
  - Tremor [Recovered/Resolved]
